FAERS Safety Report 13980903 (Version 1)
Quarter: 2017Q3

REPORT INFORMATION
  Report Type: Spontaneous
  Country: US (occurrence: US)
  Receive Date: 20170918
  Receipt Date: 20170918
  Transmission Date: 20171128
  Serious: No
  Sender: FDA-Public Use
  Company Number: US-TEVA-680591USA

PATIENT
  Age: 22 Year
  Sex: Female
  Weight: 47.62 kg

DRUGS (2)
  1. FEXOFENADINE [Suspect]
     Active Substance: FEXOFENADINE\FEXOFENADINE HYDROCHLORIDE
     Indication: ANGIOEDEMA
     Dosage: 180 MILLIGRAM DAILY;
     Route: 048
     Dates: start: 20160523, end: 20160622
  2. FEXOFENADINE [Suspect]
     Active Substance: FEXOFENADINE\FEXOFENADINE HYDROCHLORIDE
     Indication: ANGIOEDEMA
     Dosage: 180 MILLIGRAM DAILY;
     Route: 048
     Dates: start: 20160629

REACTIONS (2)
  - Product use in unapproved indication [Unknown]
  - Acne [Unknown]

NARRATIVE: CASE EVENT DATE: 20160606
